FAERS Safety Report 6171425-1 (Version None)
Quarter: 2009Q2

REPORT INFORMATION
  Report Type: 
  Country: None (occurrence: None)
  Receive Date: 20090427
  Receipt Date: 20090414
  Transmission Date: 20091009
  Serious: No
  Sender: FDA-Public Use
  Company Number: 2009-193341-NL

PATIENT
  Age: 21 Year
  Sex: Female

DRUGS (4)
  1. ETONOGESTREL (BATCH #: 385383/436895) [Suspect]
     Indication: CONTRACEPTION
     Dosage: DF SUBDERMAL
     Route: 059
     Dates: start: 20090123, end: 20090316
  2. EPINEPHRINE BITARTRATE [Concomitant]
  3. CODEINE SUL TAB [Concomitant]
  4. LOPERAMIDE HCL [Concomitant]

REACTIONS (6)
  - DIZZINESS [None]
  - HEADACHE [None]
  - HYPOAESTHESIA [None]
  - MIGRAINE [None]
  - PARAESTHESIA [None]
  - SUDDEN VISUAL LOSS [None]
